FAERS Safety Report 22234130 (Version 3)
Quarter: 2023Q2

REPORT INFORMATION
  Report Type: Spontaneous
  Country: ES (occurrence: ES)
  Receive Date: 20230420
  Receipt Date: 20230614
  Transmission Date: 20230721
  Serious: Yes (Death, Other)
  Sender: FDA-Public Use
  Company Number: ES-BIOVITRUM-2023-ES-009625

PATIENT
  Sex: Female

DRUGS (1)
  1. AVATROMBOPAG [Suspect]
     Active Substance: AVATROMBOPAG
     Indication: Hyperglycaemia
     Dosage: THE PATIENT HAD BEEN ON AVATROMBOPAG FOR 2-3 DAYS WHEN SHE DIED.?DAILY.

REACTIONS (8)
  - Tuberculosis [Fatal]
  - Abscess [Fatal]
  - Off label use [Unknown]
  - Pneumocystis jirovecii infection [Fatal]
  - Staphylococcal infection [Fatal]
  - Pseudomonas infection [Fatal]
  - Escherichia infection [Fatal]
  - Oropharyngeal candidiasis [Fatal]
